FAERS Safety Report 23034114 (Version 2)
Quarter: 2023Q4

REPORT INFORMATION
  Report Type: Spontaneous
  Country: US (occurrence: US)
  Receive Date: 20231005
  Receipt Date: 20231016
  Transmission Date: 20240110
  Serious: Yes (Hospitalization)
  Sender: FDA-Public Use
  Company Number: US-TEVA-2023-US-2930641

PATIENT
  Age: 38 Year
  Sex: Male

DRUGS (4)
  1. PREDNISONE [Suspect]
     Active Substance: PREDNISONE
     Indication: Herpes zoster reactivation
     Route: 065
  2. MEDROL [Suspect]
     Active Substance: METHYLPREDNISOLONE
     Indication: Herpes zoster reactivation
     Route: 065
  3. METFORMIN [Concomitant]
     Active Substance: METFORMIN HYDROCHLORIDE
     Indication: Type 2 diabetes mellitus
     Route: 065
  4. AMOXICILLIN\CLAVULANIC ACID [Concomitant]
     Active Substance: AMOXICILLIN\CLAVULANIC ACID
     Indication: Herpes zoster reactivation
     Route: 048

REACTIONS (2)
  - Salmonellosis [Recovering/Resolving]
  - Intervertebral discitis [Recovering/Resolving]
